FAERS Safety Report 18677429 (Version 15)
Quarter: 2021Q2

REPORT INFORMATION
  Report Type: Spontaneous
  Country: AR (occurrence: AR)
  Receive Date: 20201229
  Receipt Date: 20210625
  Transmission Date: 20210717
  Serious: Yes (Other)
  Sender: FDA-Public Use
  Company Number: AR-MYLANLABS-2020M1106216

PATIENT
  Age: 59 Year
  Sex: Female

DRUGS (9)
  1. NORTRIPTYLINE [Concomitant]
     Active Substance: NORTRIPTYLINE
     Dosage: 40 MILLIGRAM
  2. NORTRIPTYLINE;PERPHENAZINE [Concomitant]
     Dosage: NORTRIPTYLINE 40 MG/D, PERPHENAZINE 2 MG/D
  3. FLUOXETINE [Concomitant]
     Active Substance: FLUOXETINE HYDROCHLORIDE
     Dosage: UNK
  4. VALPROATE [Concomitant]
     Active Substance: VALPROIC ACID
     Dosage: UNK
     Dates: start: 20210405
  5. LAPENAX [Suspect]
     Active Substance: CLOZAPINE
     Indication: MAJOR DEPRESSION
     Dosage: 100 MILLIGRAM, QD
     Dates: start: 202009
  6. LAPENAX [Suspect]
     Active Substance: CLOZAPINE
     Dosage: 100 MILLIGRAM
  7. LAMOTRIGINE. [Concomitant]
     Active Substance: LAMOTRIGINE
     Dosage: 100 MILLIGRAM
  8. LORAZEPAM. [Concomitant]
     Active Substance: LORAZEPAM
     Dosage: 2.5 MILLIGRAM, QD
  9. LORAZEPAM. [Concomitant]
     Active Substance: LORAZEPAM
     Dosage: 1 MILLIGRAM

REACTIONS (4)
  - Neutropenia [Recovered/Resolved]
  - Lymphocyte count increased [Recovered/Resolved]
  - Product use in unapproved indication [Unknown]
  - Leukopenia [Recovered/Resolved]

NARRATIVE: CASE EVENT DATE: 20201222
